FAERS Safety Report 13956234 (Version 2)
Quarter: 2017Q3

REPORT INFORMATION
  Report Type: Spontaneous
  Country: US (occurrence: US)
  Receive Date: 20170911
  Receipt Date: 20170926
  Transmission Date: 20171128
  Serious: Yes (Other)
  Sender: FDA-Public Use
  Company Number: US-SAREPTA THERAPEUTICS, INC-SRP-000067-2017

PATIENT
  Age: 12 Year
  Sex: Male
  Weight: 46 kg

DRUGS (2)
  1. EXONDYS 51 [Suspect]
     Active Substance: ETEPLIRSEN
     Indication: DUCHENNE MUSCULAR DYSTROPHY
     Dosage: 1400 MG, WEEKLY
     Route: 042
     Dates: start: 20170823, end: 20170823
  2. EXONDYS 51 [Suspect]
     Active Substance: ETEPLIRSEN
     Dosage: 1400 MG, WEEKLY
     Route: 042
     Dates: start: 20170824, end: 20170824

REACTIONS (4)
  - Dysphagia [Unknown]
  - Cough [Recovered/Resolved]
  - Bronchospasm [Recovered/Resolved]
  - Chest discomfort [Unknown]

NARRATIVE: CASE EVENT DATE: 20170823
